FAERS Safety Report 12770925 (Version 1)
Quarter: 2016Q3

REPORT INFORMATION
  Report Type: Spontaneous
  Country: US (occurrence: US)
  Receive Date: 20160919
  Receipt Date: 20160919
  Transmission Date: 20161109
  Serious: Yes (Other)
  Sender: FDA-Public Use
  Company Number: None

PATIENT
  Age: 56 Year
  Sex: Female

DRUGS (8)
  1. EXTAVIA [Concomitant]
     Active Substance: INTERFERON BETA-1B
  2. ONDANSETRON [Concomitant]
     Active Substance: ONDANSETRON
  3. FUROSEMIDE. [Concomitant]
     Active Substance: FUROSEMIDE
  4. BACLOFEN. [Concomitant]
     Active Substance: BACLOFEN
  5. AMPYRA [Suspect]
     Active Substance: DALFAMPRIDINE
     Indication: MULTIPLE SCLEROSIS
     Route: 048
     Dates: start: 20160819
  6. ACYCLOVIR. [Concomitant]
     Active Substance: ACYCLOVIR
  7. DRONEDARONE [Concomitant]
     Active Substance: DRONEDARONE
  8. TRAZODONE [Concomitant]
     Active Substance: TRAZODONE HYDROCHLORIDE

REACTIONS (1)
  - Urine analysis abnormal [None]

NARRATIVE: CASE EVENT DATE: 20160903
